FAERS Safety Report 6186290-6 (Version None)
Quarter: 2009Q2

REPORT INFORMATION
  Report Type: 
  Country: None (occurrence: None)
  Receive Date: 20090507
  Receipt Date: 20090507
  Transmission Date: 20091009
  Serious: Yes (Hospitalization)
  Sender: FDA-Public Use
  Company Number: None

PATIENT
  Sex: Male
  Weight: 69 kg

DRUGS (2)
  1. BUSULFAN [Suspect]
     Indication: ACUTE MYELOID LEUKAEMIA
     Dosage: 57MG Q 6 HR TO 16 DES IV
     Route: 042
     Dates: start: 20090318
  2. CYCLOPHOSPHAMIDE [Suspect]
     Indication: ACUTE MYELOID LEUKAEMIA
     Dosage: 3550 MG 4 DAYS IV
     Route: 042
     Dates: start: 20090322

REACTIONS (4)
  - BONE MARROW TRANSPLANT [None]
  - HAEMATURIA [None]
  - PAROTID GLAND ENLARGEMENT [None]
  - PROTEINURIA [None]
